FAERS Safety Report 9204257 (Version 1)
Quarter: 2013Q2

REPORT INFORMATION
  Report Type: Spontaneous
  Country: US (occurrence: US)
  Receive Date: 20130402
  Receipt Date: 20130402
  Transmission Date: 20140414
  Serious: Yes (Other)
  Sender: FDA-Public Use
  Company Number: US-ALLERGAN-200504105

PATIENT
  Age: 43 Year
  Sex: Female

DRUGS (1)
  1. BOTOX? [Suspect]
     Indication: SKIN WRINKLING
     Dosage: 44 UNITS
     Route: 030
     Dates: start: 20050411, end: 20050411

REACTIONS (2)
  - Abortion spontaneous [Unknown]
  - Pregnancy [Recovered/Resolved]
